FAERS Safety Report 7589638-0 (Version None)
Quarter: 2011Q3

REPORT INFORMATION
  Report Type: 
  Country: None (occurrence: None)
  Receive Date: 20110705
  Receipt Date: 20110622
  Transmission Date: 20111222
  Serious: Yes (Hospitalization)
  Sender: FDA-Public Use
  Company Number: DE-ROCHE-786743

PATIENT
  Sex: Male
  Weight: 72 kg

DRUGS (3)
  1. PEGINTERFERON ALFA-2A [Suspect]
     Route: 058
     Dates: start: 20100510, end: 20100830
  2. METHADON [Concomitant]
  3. RIBAVIRIN [Suspect]
     Route: 048
     Dates: start: 20100510, end: 20100830

REACTIONS (1)
  - EMPYEMA [None]
